FAERS Safety Report 5449831-X (Version None)
Quarter: 2007Q3

REPORT INFORMATION
  Report Type: 
  Country: None (occurrence: None)
  Receive Date: 20070904
  Receipt Date: 20070823
  Transmission Date: 20080115
  Serious: Yes (Other)
  Sender: FDA-Public Use
  Company Number: AECAN200700202

PATIENT
  Age: 78 Year
  Sex: Male
  Weight: 54.4316 kg

DRUGS (2)
  1. PLASBUMIN 25% - TALECRIS (ALBUMIN (HUMAN)) (25 PCT) [Suspect]
     Indication: ASCITES
     Dosage: 25 PCT; 1X; IV
     Route: 042
  2. PLASBUMIN 25% - TALECRIS (ALBUMIN (HUMAN)) (25 PCT) [Suspect]
     Indication: URINE OUTPUT DECREASED
     Dosage: 25 PCT; 1X; IV
     Route: 042

REACTIONS (6)
  - BLOOD PRESSURE DECREASED [None]
  - CHEST DISCOMFORT [None]
  - CONFUSIONAL STATE [None]
  - DYSARTHRIA [None]
  - DYSPNOEA [None]
  - NAUSEA [None]
